FAERS Safety Report 24430492 (Version 2)
Quarter: 2024Q4

REPORT INFORMATION
  Report Type: Spontaneous
  Country: FR (occurrence: FR)
  Receive Date: 20241013
  Receipt Date: 20241024
  Transmission Date: 20250115
  Serious: Yes (Other)
  Sender: BRISTOL-MYERS SQUIBB COMPANY
  Company Number: FR-STADA-01299256

PATIENT
  Age: 64 Year
  Sex: Female

DRUGS (10)
  1. REVLIMID [Suspect]
     Active Substance: LENALIDOMIDE
     Indication: Plasma cell myeloma
     Dosage: DVRD REGIMEN; RECEIVED 1 CYCLE
  2. REVLIMID [Suspect]
     Active Substance: LENALIDOMIDE
     Dosage: VRD REGIMEN; RECEIVED 3 CYCLE
  3. BORTEZOMIB [Suspect]
     Active Substance: BORTEZOMIB
     Indication: Plasma cell myeloma
     Dosage: VRD REGIMEN; RECEIVED 3 CYCLES
  4. BORTEZOMIB [Suspect]
     Active Substance: BORTEZOMIB
     Dosage: DVRD REGIMEN; RECEIVED 1 CYCLES
  5. DARATUMUMAB [Suspect]
     Active Substance: DARATUMUMAB
     Indication: Plasma cell myeloma
     Dosage: DD REGIMEN; RECEIVED 2 CYCLES
  6. DARATUMUMAB [Suspect]
     Active Substance: DARATUMUMAB
     Dosage: DVRD REGIMEN:1 CYCLE
  7. DEXAMETHASONE [Suspect]
     Active Substance: DEXAMETHASONE
     Indication: Plasma cell myeloma
     Dosage: VRD REGIMEN; RECEIVED 3 CYCLES
  8. DEXAMETHASONE [Suspect]
     Active Substance: DEXAMETHASONE
     Dosage: DVRD REGIMEN; RECEIVED 1 CYCLE
  9. DEXAMETHASONE [Suspect]
     Active Substance: DEXAMETHASONE
     Dosage: DD REGIMEN; RECEIVED 2 CYCLE
  10. MELPHALAN [Suspect]
     Active Substance: MELPHALAN
     Indication: Plasma cell myeloma

REACTIONS (1)
  - Posterior reversible encephalopathy syndrome [Recovered/Resolved]
